FAERS Safety Report 5775248-4 (Version None)
Quarter: 2008Q2

REPORT INFORMATION
  Report Type: 
  Country: None (occurrence: None)
  Receive Date: 20080617
  Receipt Date: 20080610
  Transmission Date: 20081010
  Serious: Yes (Life-Threatening, Hospitalization, Other)
  Sender: FDA-Public Use
  Company Number: DE-PURDUE-EZFI 00027

PATIENT
  Age: 55 Year
  Sex: Male
  Weight: 80 kg

DRUGS (4)
  1. DHC MUNDIPHARMA 120 MG [Suspect]
     Indication: PAIN
     Dosage: UNK, SEE TEXT
     Route: 048
  2. XANEF [Suspect]
     Indication: HYPERTENSION
     Route: 048
     Dates: start: 19910101
  3. IBUROFEN [Suspect]
     Indication: BACK PAIN
     Route: 048
  4. UNIPHYLLIN 600 MG, RETARDTABLETTEN [Suspect]
     Indication: BRONCHITIS
     Dosage: 600 MG, DAILY
     Route: 048

REACTIONS (2)
  - GRAND MAL CONVULSION [None]
  - RENAL FAILURE ACUTE [None]
